FAERS Safety Report 23609963 (Version 1)
Quarter: 2024Q1

REPORT INFORMATION
  Report Type: Spontaneous
  Country: US (occurrence: US)
  Receive Date: 20240308
  Receipt Date: 20240308
  Transmission Date: 20240410
  Serious: No
  Sender: FDA-Public Use
  Company Number: US-NEURELIS, INC.-2023NEU000093

PATIENT

DRUGS (2)
  1. VALTOCO [Suspect]
     Active Substance: DIAZEPAM
     Indication: Aura
     Dosage: 20 MILLIGRAM, PRN
     Route: 045
  2. VALTOCO [Suspect]
     Active Substance: DIAZEPAM
     Indication: Seizure cluster

REACTIONS (2)
  - Upper-airway cough syndrome [Unknown]
  - Dysgeusia [Unknown]
